FAERS Safety Report 7603524-9 (Version None)
Quarter: 2011Q3

REPORT INFORMATION
  Report Type: 
  Country: None (occurrence: None)
  Receive Date: 20110711
  Receipt Date: 20110711
  Transmission Date: 20111222
  Serious: No
  Sender: FDA-Public Use
  Company Number: None

PATIENT
  Sex: Female
  Weight: 70 kg

DRUGS (2)
  1. TOPOTECAN [Suspect]
     Dosage: .88 MG
  2. CISPLATIN [Suspect]
     Dosage: 70 MG

REACTIONS (1)
  - HYPOKALAEMIA [None]
